FAERS Safety Report 20109991 (Version 1)
Quarter: 2021Q4

REPORT INFORMATION
  Report Type: Spontaneous
  Country: US (occurrence: None)
  Receive Date: 20211124
  Receipt Date: 20211124
  Transmission Date: 20220303
  Serious: Yes (Other)
  Sender: FDA-Public Use
  Company Number: None

PATIENT
  Age: 64 Year
  Sex: Female
  Weight: 50.4 kg

DRUGS (6)
  1. GLATOPA [Suspect]
     Active Substance: GLATIRAMER ACETATE
     Indication: Multiple sclerosis
     Dosage: FREQUENCY : DAILY;?
     Dates: start: 20180901
  2. PRIMROSE OIL [Concomitant]
  3. Calcium + magnesium + vit D [Concomitant]
  4. Little critters vitamins multi [Concomitant]
  5. VITAMIN D3 [Concomitant]
     Active Substance: CHOLECALCIFEROL
  6. BEE POLLEN [Concomitant]
     Active Substance: BEE POLLEN

REACTIONS (7)
  - Injection related reaction [None]
  - Injection site pruritus [None]
  - Injection site urticaria [None]
  - Injection site erythema [None]
  - Injection site irritation [None]
  - Chest discomfort [None]
  - Injection site swelling [None]

NARRATIVE: CASE EVENT DATE: 20211122
